FAERS Safety Report 8038475-1 (Version None)
Quarter: 2012Q1

REPORT INFORMATION
  Report Type: 
  Country: None (occurrence: None)
  Receive Date: 20120111
  Receipt Date: 20111207
  Transmission Date: 20120608
  Serious: No
  Sender: FDA-Public Use
  Company Number: US-AMGEN-USASP2011065244

PATIENT
  Sex: Male

DRUGS (2)
  1. ENBREL [Suspect]
     Indication: ANKYLOSING SPONDYLITIS
     Dosage: 0.7 MG, QWK
     Dates: start: 20110803
  2. ENBREL [Suspect]
     Dosage: 25 MG, UNK

REACTIONS (1)
  - ARTHRALGIA [None]
